FAERS Safety Report 5682537-0 (Version None)
Quarter: 2008Q1

REPORT INFORMATION
  Report Type: 
  Country: None (occurrence: None)
  Receive Date: 20080327
  Receipt Date: 20071220
  Transmission Date: 20080703
  Serious: Yes (Life-Threatening, Other)
  Sender: FDA-Public Use
  Company Number: US-BRISTOL-MYERS SQUIBB COMPANY-13986799

PATIENT
  Age: 80 Year
  Sex: Female

DRUGS (7)
  1. ORENCIA [Suspect]
     Indication: RHEUMATOID ARTHRITIS
     Route: 042
     Dates: start: 20071119, end: 20071119
  2. DARVOCET-N 100 [Suspect]
  3. METHOTREXATE [Concomitant]
     Route: 048
  4. FOLIC ACID [Concomitant]
  5. PREDNISOLONE [Concomitant]
     Route: 048
  6. CLINORIL [Concomitant]
     Route: 048
  7. MAXIDEX [Concomitant]

REACTIONS (1)
  - HYPERSENSITIVITY [None]
